FAERS Safety Report 13781857 (Version 1)
Quarter: 2017Q3

REPORT INFORMATION
  Report Type: Spontaneous
  Country: US (occurrence: US)
  Receive Date: 20170724
  Receipt Date: 20170724
  Transmission Date: 20171127
  Serious: No
  Sender: FDA-Public Use
  Company Number: US-BRISTOL-MYERS SQUIBB COMPANY-BMS-2017-065223

PATIENT
  Sex: Female
  Weight: 80.5 kg

DRUGS (1)
  1. IPILIMUMAB [Suspect]
     Active Substance: IPILIMUMAB
     Indication: METASTATIC MALIGNANT MELANOMA
     Dosage: 800 MG, UNK
     Route: 042
     Dates: start: 20170114

REACTIONS (3)
  - Off label use [Unknown]
  - Weight increased [Unknown]
  - Prescribed overdose [Unknown]
